FAERS Safety Report 12943306 (Version 1)
Quarter: 2016Q4

REPORT INFORMATION
  Report Type: Spontaneous
  Country: US (occurrence: US)
  Receive Date: 20161115
  Receipt Date: 20161115
  Transmission Date: 20170207
  Serious: No
  Sender: FDA-Public Use
  Company Number: US-NOVOPROD-497422

PATIENT
  Age: 51 Year
  Sex: Female

DRUGS (2)
  1. VAGIFEM LD [Suspect]
     Active Substance: ESTRADIOL
     Indication: ATROPHIC VULVOVAGINITIS
     Dosage: 1/2 TABLET
     Route: 067
     Dates: start: 201511, end: 201604
  2. VAGIFEM LD [Suspect]
     Active Substance: ESTRADIOL
     Dosage: 1 FULL TABLET
     Route: 067
     Dates: start: 201605, end: 201606

REACTIONS (5)
  - Pollakiuria [Recovered/Resolved]
  - Off label use [Recovered/Resolved]
  - Abdominal distension [Recovered/Resolved]
  - Bladder discomfort [Recovered/Resolved]
  - Inflammation [Recovered/Resolved]
